FAERS Safety Report 17551530 (Version 4)
Quarter: 2021Q1

REPORT INFORMATION
  Report Type: Spontaneous
  Country: US (occurrence: US)
  Receive Date: 20200317
  Receipt Date: 20210224
  Transmission Date: 20210419
  Serious: No
  Sender: FDA-Public Use
  Company Number: US-SA-2020SA062152

PATIENT
  Age: 64 Year
  Sex: Female

DRUGS (1)
  1. DUPIXENT [Suspect]
     Active Substance: DUPILUMAB
     Indication: ASTHMA
     Dosage: 300 MG, QOW
     Route: 058
     Dates: start: 20200217

REACTIONS (9)
  - Pyrexia [Unknown]
  - Injection site pain [Unknown]
  - Secretion discharge [Recovered/Resolved]
  - Vision blurred [Not Recovered/Not Resolved]
  - Dysphonia [Unknown]
  - Productive cough [Recovered/Resolved]
  - Cough [Not Recovered/Not Resolved]
  - Swelling of eyelid [Unknown]
  - Vocal cord thickening [Unknown]

NARRATIVE: CASE EVENT DATE: 2020
